FAERS Safety Report 11528485 (Version 1)
Quarter: 2015Q3

REPORT INFORMATION
  Report Type: Spontaneous
  Country: US (occurrence: US)
  Receive Date: 20150921
  Receipt Date: 20150921
  Transmission Date: 20151125
  Serious: No
  Sender: FDA-Public Use
  Company Number: US-BRISTOL-MYERS SQUIBB COMPANY-14984785

PATIENT
  Age: 37 Year
  Sex: Female

DRUGS (2)
  1. COUMADIN [Suspect]
     Active Substance: WARFARIN SODIUM
     Indication: HEART VALVE REPLACEMENT
     Dosage: UNK
     Route: 065
     Dates: start: 20100114
  2. LOVENOX [Suspect]
     Active Substance: ENOXAPARIN SODIUM
     Indication: HEART VALVE REPLACEMENT
     Dosage: 110 MG, BID
     Route: 065
     Dates: start: 20100114

REACTIONS (3)
  - Injection site vesicles [Unknown]
  - Maternal exposure during pregnancy [Unknown]
  - Injection site haematoma [Unknown]

NARRATIVE: CASE EVENT DATE: 20100114
